FAERS Safety Report 10754531 (Version 1)
Quarter: 2015Q1

REPORT INFORMATION
  Report Type: Spontaneous
  Country: US (occurrence: None)
  Receive Date: 20150130
  Receipt Date: 20150130
  Transmission Date: 20150721
  Serious: Yes (Death)
  Sender: FDA-Public Use
  Company Number: None

PATIENT
  Age: 65 Year
  Sex: Female

DRUGS (14)
  1. AMPYRA [Suspect]
     Active Substance: DALFAMPRIDINE
     Indication: MULTIPLE SCLEROSIS
     Route: 048
     Dates: start: 201007
  2. TEGRETOL [Concomitant]
     Active Substance: CARBAMAZEPINE
  3. NUVIGIL [Concomitant]
     Active Substance: ARMODAFINIL
  4. LEVOTHROID [Concomitant]
     Active Substance: LEVOTHYROXINE SODIUM
  5. LACTULOSE. [Concomitant]
     Active Substance: LACTULOSE
  6. LASIX [Concomitant]
     Active Substance: FUROSEMIDE
  7. ZANAFLEX [Concomitant]
     Active Substance: TIZANIDINE HYDROCHLORIDE
  8. CLONAZEPAM. [Concomitant]
     Active Substance: CLONAZEPAM
  9. NIFEDIPINE. [Concomitant]
     Active Substance: NIFEDIPINE
  10. ZESTRIL [Concomitant]
     Active Substance: LISINOPRIL
  11. CITALOPRAM [Concomitant]
     Active Substance: CITALOPRAM HYDROBROMIDE
  12. AMPYRA [Concomitant]
     Active Substance: DALFAMPRIDINE
  13. METOPROLOL [Concomitant]
     Active Substance: METOPROLOL
  14. LOVENOX [Concomitant]
     Active Substance: ENOXAPARIN SODIUM

REACTIONS (3)
  - Bradycardia [None]
  - Altered state of consciousness [None]
  - Increased bronchial secretion [None]

NARRATIVE: CASE EVENT DATE: 20130212
